FAERS Safety Report 25336073 (Version 1)
Quarter: 2025Q2

REPORT INFORMATION
  Report Type: Spontaneous
  Country: US (occurrence: None)
  Receive Date: 20250520
  Receipt Date: 20250520
  Transmission Date: 20250717
  Serious: No
  Sender: FDA-CTU
  Company Number: None

PATIENT
  Age: 69 Year
  Sex: Male
  Weight: 63 kg

DRUGS (5)
  1. TAMSULOSIN HYDROCHLORIDE [Suspect]
     Active Substance: TAMSULOSIN HYDROCHLORIDE
     Indication: Urinary retention
     Dosage: OTHER QUANTITY : 1 CAPSULE(S);?FREQUENCY : AT BEDTIME;?
     Route: 048
  2. TAMSULOSIN HYDROCHLORIDE [Suspect]
     Active Substance: TAMSULOSIN HYDROCHLORIDE
     Indication: Pollakiuria
  3. levothyroxine 0.88 mg daily [Concomitant]
  4. Pro-X10 prebiotic/probiotic [Concomitant]
  5. NATTOKINASE [Concomitant]
     Active Substance: NATTOKINASE

REACTIONS (3)
  - Initial insomnia [None]
  - Ejaculation delayed [None]
  - Male orgasmic disorder [None]

NARRATIVE: CASE EVENT DATE: 20250519
